FAERS Safety Report 8519572 (Version 2)
Quarter: 2012Q4

REPORT INFORMATION
  Report Type: 
  Country: US (occurrence: US)
  Receive Date: 20120418
  Receipt Date: 20121005
  Transmission Date: 20130627
  Serious: Yes (Other)
  Sender: FDA-Public Use
  Company Number: US-PFIZER INC-2012094596

PATIENT

DRUGS (2)
  1. CYKLOKAPRON [Suspect]
     Indication: PROCOAGULANT THERAPY
     Dosage: 1000 mg, UNK
     Route: 042
     Dates: start: 201203, end: 201203
  2. LOVENOX [Suspect]
     Indication: THROMBOSIS PROPHYLAXIS
     Dosage: UNK
     Dates: start: 201203

REACTIONS (1)
  - Pulmonary embolism [Not Recovered/Not Resolved]
